FAERS Safety Report 4508491-2 (Version None)
Quarter: 2004Q4

REPORT INFORMATION
  Report Type: 
  Country: None (occurrence: None)
  Receive Date: 20041123
  Receipt Date: 20040303
  Transmission Date: 20050328
  Serious: No
  Sender: FDA-Public Use
  Company Number: US-GLAXOSMITHKLINE-A0501066A

PATIENT

DRUGS (2)
  1. WELLBUTRIN SR [Suspect]
  2. PAIN MEDICATION [Concomitant]
     Indication: PAIN
     Route: 065

REACTIONS (2)
  - BEDRIDDEN [None]
  - DRUG INTERACTION [None]
